FAERS Safety Report 15781856 (Version 1)
Quarter: 2019Q1

REPORT INFORMATION
  Report Type: Report from Study
  Country: CA (occurrence: CA)
  Receive Date: 20190102
  Receipt Date: 20190102
  Transmission Date: 20190417
  Serious: Yes (Hospitalization, Other)
  Sender: FDA-Public Use
  Company Number: CA-ASTELLAS-2018US040731

PATIENT
  Age: 40 Year
  Sex: Female
  Weight: 65 kg

DRUGS (15)
  1. ESCITALOPRAM [Interacting]
     Active Substance: ESCITALOPRAM OXALATE
     Indication: ANXIETY
     Route: 048
     Dates: start: 2015, end: 20181002
  2. DECADRON [Suspect]
     Active Substance: DEXAMETHASONE
     Route: 048
     Dates: start: 20181003, end: 20181003
  3. ASP2215 [Suspect]
     Active Substance: GILTERITINIB
     Indication: ACUTE MYELOID LEUKAEMIA
     Route: 048
     Dates: start: 20180910, end: 20180911
  4. ASP2215 [Suspect]
     Active Substance: GILTERITINIB
     Route: 048
     Dates: start: 20181009, end: 20181115
  5. VALTREX [Concomitant]
     Active Substance: VALACYCLOVIR HYDROCHLORIDE
     Indication: INFECTION PROPHYLAXIS
     Route: 048
     Dates: start: 2017
  6. AMITRIPTYLINE [Interacting]
     Active Substance: AMITRIPTYLINE
     Indication: ANXIETY
     Route: 048
     Dates: start: 201702, end: 20181002
  7. PENTAMIDINE [Concomitant]
     Active Substance: PENTAMIDINE
     Indication: INFECTION PROPHYLAXIS
     Dosage: UNK UNK, MONTHLY, NEBULIZED
     Route: 065
     Dates: start: 201807
  8. DECADRON [Suspect]
     Active Substance: DEXAMETHASONE
     Route: 048
     Dates: start: 20181001, end: 20181002
  9. ASP2215 [Suspect]
     Active Substance: GILTERITINIB
     Route: 048
     Dates: start: 20180914, end: 20180929
  10. VORICONAZOLE. [Interacting]
     Active Substance: VORICONAZOLE
     Indication: PNEUMONIA
     Route: 042
     Dates: start: 20180919, end: 20180928
  11. VORICONAZOLE. [Interacting]
     Active Substance: VORICONAZOLE
     Indication: BRONCHOPULMONARY ASPERGILLOSIS
  12. ESCITALOPRAM [Interacting]
     Active Substance: ESCITALOPRAM OXALATE
     Dosage: UNK UNK, UNKNOWN FREQ. (REDCED DOSE)
     Route: 048
     Dates: start: 20181005
  13. HYDREA [Concomitant]
     Active Substance: HYDROXYUREA
     Indication: ACUTE MYELOID LEUKAEMIA
     Route: 048
     Dates: start: 20180906, end: 20180913
  14. AMITRIPTYLINE [Interacting]
     Active Substance: AMITRIPTYLINE
     Indication: MIGRAINE
     Dosage: UNK UNK, UNKNOWN FREQ. (REDUCED DOE)
     Route: 048
     Dates: start: 20181005
  15. DECADRON [Suspect]
     Active Substance: DEXAMETHASONE
     Indication: DIFFERENTIATION SYNDROME
     Route: 048
     Dates: start: 20180927, end: 20180930

REACTIONS (9)
  - Acute febrile neutrophilic dermatosis [Not Recovered/Not Resolved]
  - Febrile neutropenia [Recovered/Resolved]
  - Febrile neutropenia [Recovered/Resolved]
  - Syncope [Recovered/Resolved]
  - Pneumonia [Not Recovered/Not Resolved]
  - Somnolence [Recovered/Resolved]
  - Electrocardiogram QT prolonged [Recovered/Resolved]
  - Drug interaction [Recovered/Resolved]
  - Sinus bradycardia [Recovered/Resolved]

NARRATIVE: CASE EVENT DATE: 20180912
